FAERS Safety Report 19695662 (Version 1)
Quarter: 2021Q3

REPORT INFORMATION
  Report Type: Spontaneous
  Country: CA (occurrence: CA)
  Receive Date: 20210813
  Receipt Date: 20210813
  Transmission Date: 20211014
  Serious: Yes (Other)
  Sender: FDA-Public Use
  Company Number: CA-TEVA-2021-CA-1940018

PATIENT
  Age: 48 Year
  Sex: Male

DRUGS (3)
  1. FLAGYL [Suspect]
     Active Substance: METRONIDAZOLE\METRONIDAZOLE HYDROCHLORIDE
     Indication: PRODUCT USED FOR UNKNOWN INDICATION
     Route: 048
  2. VITAMIN D [Concomitant]
     Active Substance: VITAMIN D NOS
  3. CIPROFLOXACIN HYDROCHLORIDE. [Suspect]
     Active Substance: CIPROFLOXACIN HYDROCHLORIDE
     Indication: CROHN^S DISEASE
     Dosage: 1000 MILLIGRAM DAILY;
     Route: 048

REACTIONS (5)
  - Drug ineffective for unapproved indication [Not Recovered/Not Resolved]
  - Malaise [Not Recovered/Not Resolved]
  - Abscess neck [Not Recovered/Not Resolved]
  - Fatigue [Not Recovered/Not Resolved]
  - Swelling face [Not Recovered/Not Resolved]
